FAERS Safety Report 6084318-5 (Version None)
Quarter: 2009Q1

REPORT INFORMATION
  Report Type: 
  Country: None (occurrence: None)
  Receive Date: 20090219
  Receipt Date: 20090128
  Transmission Date: 20090719
  Serious: Yes (Hospitalization)
  Sender: FDA-Public Use
  Company Number: US-PFIZER INC-2009167557

PATIENT
  Sex: Male
  Weight: 105 kg

DRUGS (6)
  1. LOMOTIL [Suspect]
     Indication: CROHN'S DISEASE
     Dosage: UNK MG/KG, UNK
  2. REMICADE [Suspect]
     Indication: CROHN'S DISEASE
     Dosage: 5 MG/KG, UNK
     Route: 042
     Dates: start: 19991116
  3. REMICADE [Suspect]
     Dosage: 5 MG/KG, UNK
     Dates: start: 20010118
  4. REMICADE [Suspect]
     Dosage: 10 MG/KG, UNK
     Dates: start: 20010806
  5. LOPERAMIDE HYDROCHLORIDE [Suspect]
     Indication: CROHN'S DISEASE
  6. HUMIRA [Suspect]
     Indication: CROHN'S DISEASE

REACTIONS (1)
  - DEHYDRATION [None]
